FAERS Safety Report 9392624 (Version 1)
Quarter: 2013Q3

REPORT INFORMATION
  Report Type: Spontaneous
  Country: GB (occurrence: GB)
  Receive Date: 20130710
  Receipt Date: 20130710
  Transmission Date: 20140515
  Serious: Yes (Other)
  Sender: FDA-Public Use
  Company Number: GB-UCBSA-087007

PATIENT
  Age: 71 Year
  Sex: Female
  Weight: 59 kg

DRUGS (4)
  1. CIMZIA [Suspect]
     Indication: RHEUMATOID ARTHRITIS
     Dosage: NUMBER OF DOSES RECEIVED : 8
     Route: 058
     Dates: start: 20130306, end: 20130508
  2. MELOXICAM [Concomitant]
     Route: 048
     Dates: start: 20070515
  3. URSODEOXYCHOLIC ACID [Concomitant]
     Indication: LIVER INJURY
     Route: 048
  4. CO-DYDRAMOL [Concomitant]
     Dosage: DOSE: 15/500, QDS (FOUR TIMES A DAY)

REACTIONS (1)
  - Pruritus generalised [Recovered/Resolved]
